FAERS Safety Report 13524500 (Version 1)
Quarter: 2017Q2

REPORT INFORMATION
  Report Type: Spontaneous
  Country: DE (occurrence: DE)
  Receive Date: 20170508
  Receipt Date: 20170508
  Transmission Date: 20170830
  Serious: Yes (Hospitalization)
  Sender: FDA-Public Use
  Company Number: GXKR2017DE002557

PATIENT
  Age: 76 Year
  Sex: Male

DRUGS (2)
  1. RAMIPRIL 1A PHARMA [Suspect]
     Active Substance: RAMIPRIL
     Indication: CARDIAC FAILURE
     Dosage: 2.5 MG, BID
     Route: 048
     Dates: start: 201701
  2. XARELTO [Concomitant]
     Active Substance: RIVAROXABAN
     Indication: PRODUCT USED FOR UNKNOWN INDICATION

REACTIONS (7)
  - Renal failure [Unknown]
  - Balance disorder [Unknown]
  - Pruritus [Unknown]
  - Decreased appetite [Unknown]
  - Vision blurred [Unknown]
  - Hyperhidrosis [Unknown]
  - Haematoma [Unknown]
